FAERS Safety Report 5598862-8 (Version None)
Quarter: 2008Q1

REPORT INFORMATION
  Report Type: 
  Country: None (occurrence: None)
  Receive Date: 20080117
  Receipt Date: 20080110
  Transmission Date: 20080703
  Serious: Yes (Death, Hospitalization)
  Sender: FDA-Public Use
  Company Number: 231499J07USA

PATIENT
  Age: 31 Year
  Sex: Female
  Weight: 49.8957 kg

DRUGS (1)
  1. REBIF [Suspect]
     Indication: MULTIPLE SCLEROSIS
     Dosage: 44 MCG, 3 IN 1 WEEKS, SUBCUTANEOUS
     Route: 058
     Dates: start: 20021223, end: 20070901

REACTIONS (2)
  - CHOLELITHIASIS [None]
  - PULMONARY EMBOLISM [None]
